FAERS Safety Report 15064502 (Version 1)
Quarter: 2018Q2

REPORT INFORMATION
  Report Type: Report from Study
  Country: US (occurrence: US)
  Receive Date: 20180625
  Receipt Date: 20180625
  Transmission Date: 20180711
  Serious: No
  Sender: FDA-Public Use
  Company Number: US-AMGEN-USASL2016074724

PATIENT
  Age: 88 Year
  Sex: Female

DRUGS (1)
  1. REPATHA [Suspect]
     Active Substance: EVOLOCUMAB
     Indication: TYPE IIA HYPERLIPIDAEMIA
     Dosage: 140 MG, Q2WK
     Route: 065

REACTIONS (8)
  - Pain in extremity [Unknown]
  - Fatigue [Unknown]
  - Mobility decreased [Unknown]
  - Dyspnoea exertional [Unknown]
  - Malaise [Unknown]
  - Sleep disorder [Unknown]
  - Memory impairment [Not Recovered/Not Resolved]
  - Injection site pain [Unknown]
